FAERS Safety Report 17460069 (Version 1)
Quarter: 2020Q1

REPORT INFORMATION
  Report Type: Spontaneous
  Country: US (occurrence: US)
  Receive Date: 20200226
  Receipt Date: 20200226
  Transmission Date: 20200409
  Serious: Yes (Hospitalization)
  Sender: FDA-Public Use
  Company Number: US-MYLANLABS-2020M1021191

PATIENT
  Age: 87 Year
  Sex: Male

DRUGS (3)
  1. APIXABAN [Concomitant]
     Active Substance: APIXABAN
     Indication: ATRIAL FIBRILLATION
     Route: 065
  2. VANCOMYCIN [Suspect]
     Active Substance: VANCOMYCIN
     Indication: STAPHYLOCOCCAL BACTERAEMIA
     Dosage: UNK
     Route: 042
     Dates: start: 20181104, end: 20181112
  3. DAPTOMYCIN. [Suspect]
     Active Substance: DAPTOMYCIN
     Indication: STAPHYLOCOCCAL BACTERAEMIA
     Dosage: UNK
     Route: 042
     Dates: start: 20181113

REACTIONS (4)
  - Blood bilirubin increased [Recovering/Resolving]
  - Blood creatinine increased [Recovering/Resolving]
  - Blood creatine phosphokinase increased [Recovered/Resolved]
  - Drug-induced liver injury [Recovering/Resolving]

NARRATIVE: CASE EVENT DATE: 2018
